FAERS Safety Report 7940770-9 (Version None)
Quarter: 2011Q4

REPORT INFORMATION
  Report Type: 
  Country: None (occurrence: None)
  Receive Date: 20111128
  Receipt Date: 20111117
  Transmission Date: 20120403
  Serious: Yes (Death, Life-Threatening, Hospitalization)
  Sender: FDA-Public Use
  Company Number: DE-PFIZER INC-199967064PHANOV

PATIENT
  Age: 61 Year
  Sex: Male
  Weight: 84 kg

DRUGS (42)
  1. SUCCINYLCHOLINE CHLORIDE [Suspect]
     Dosage: UNK
     Route: 042
     Dates: start: 19960425
  2. CALCIPARINE [Suspect]
     Indication: PROPHYLAXIS
     Dosage: UNK
     Route: 042
     Dates: start: 19960425, end: 19960430
  3. UBRETID [Suspect]
     Indication: PROPHYLAXIS
     Dosage: UNK
     Route: 030
     Dates: start: 19960427
  4. PROPULSIN [Suspect]
     Dosage: UNK
     Route: 048
     Dates: start: 19960429, end: 19960430
  5. DIGITOXIN TAB [Suspect]
     Indication: CARDIAC FAILURE
     Dosage: UNK
     Route: 042
     Dates: start: 19960502, end: 19960507
  6. NUTRIFLEX ^BRAUN^ [Concomitant]
     Dosage: UNK
     Route: 042
     Dates: start: 19960503, end: 19960507
  7. LOSFERRON [Concomitant]
     Dosage: UNK
     Route: 048
     Dates: start: 19960419, end: 19960422
  8. TEMAZEPAM [Suspect]
     Indication: SEDATION
     Dosage: UNK
     Route: 048
     Dates: start: 19960424, end: 19960424
  9. TAKUS [Suspect]
     Indication: PROPHYLAXIS
     Dosage: UNK
     Route: 042
     Dates: start: 19960507, end: 19960507
  10. ADALAT [Suspect]
     Indication: ESSENTIAL HYPERTENSION
     Dosage: UNK
     Route: 048
     Dates: start: 19960426, end: 19960428
  11. TRACRIUM [Suspect]
     Dosage: UNK
     Route: 042
     Dates: start: 19960425
  12. ALDACTONE [Suspect]
     Indication: ASCITES
     Dosage: UNK
     Route: 042
     Dates: start: 19960503, end: 19960507
  13. SODIUM CHLORIDE [Concomitant]
     Dosage: UNK
     Route: 042
     Dates: start: 19960505, end: 19960505
  14. ACETYLCYSTEINE [Suspect]
     Dosage: UNK
     Route: 042
     Dates: start: 19960501, end: 19960507
  15. MULTIBIONTA [Concomitant]
     Dosage: UNK
     Route: 042
     Dates: start: 19960505, end: 19960507
  16. TPN ELECTROLYTES IN PLASTIC CONTAINER [Concomitant]
     Dosage: UNK
     Route: 042
     Dates: start: 19960502, end: 19960503
  17. RINGERS SOLUTION [Concomitant]
     Dosage: UNK
     Route: 042
     Dates: start: 19960501, end: 19960505
  18. LASIX [Suspect]
     Dosage: UNK
     Route: 042
     Dates: start: 19960501, end: 19960507
  19. CAPTOPRIL [Suspect]
     Indication: ESSENTIAL HYPERTENSION
     Dosage: UNK
     Route: 048
     Dates: start: 19960427, end: 19960430
  20. PANTHENOL [Suspect]
     Indication: PROPHYLAXIS
     Dosage: UNK
     Route: 042
     Dates: start: 19960430, end: 19960501
  21. LEFAX [Suspect]
     Indication: FLATULENCE
     Dosage: UNK
     Route: 048
     Dates: start: 19960427, end: 19960427
  22. PARACTOL [Suspect]
     Indication: FLATULENCE
     Dosage: UNK
     Route: 048
     Dates: start: 19960429, end: 19960430
  23. MEROPENEM [Suspect]
     Dosage: UNK
     Dates: start: 19960501, end: 19960507
  24. SUFENTA PRESERVATIVE FREE [Suspect]
     Dosage: UNK
     Route: 042
     Dates: start: 19960501, end: 19960505
  25. POTASSIUM CHLORIDE [Concomitant]
     Dosage: UNK
     Route: 042
     Dates: start: 19960429, end: 19960503
  26. ATROPINE SULFATE [Suspect]
     Indication: SURGERY
     Dosage: UNK
     Route: 042
     Dates: start: 19960425
  27. ALFENTANIL [Suspect]
     Dosage: UNK
     Route: 042
     Dates: start: 19960425
  28. DIPIDOLOR [Suspect]
     Dosage: UNK
     Route: 030
     Dates: start: 19960426, end: 19960428
  29. HETASTARCH IN SODIUM CHLORIDE [Suspect]
     Dosage: UNK
     Route: 042
     Dates: start: 19960506, end: 19960506
  30. LIPOVENOES [Concomitant]
     Dosage: UNK
     Route: 042
     Dates: start: 19960505, end: 19960507
  31. MAGNESIUM SULFATE [Concomitant]
     Dosage: UNK
     Route: 048
     Dates: start: 19960418, end: 19960423
  32. STEROFUNDIN [Concomitant]
     Dosage: UNK
     Route: 042
     Dates: start: 19960503, end: 19960507
  33. MULTIVITAMIN ADDITIVE [Concomitant]
     Dosage: UNK
     Route: 042
     Dates: start: 19960507, end: 19960507
  34. NITRAZEPAM [Suspect]
     Dosage: UNK
     Route: 042
     Dates: start: 19960501, end: 19960505
  35. CARBOCISTEINE [Suspect]
     Dosage: UNK
     Route: 042
     Dates: start: 19960425, end: 19960426
  36. DOPAMINE HYDROCHLORIDE [Suspect]
     Indication: RENAL FAILURE
     Dosage: UNK
     Route: 042
     Dates: start: 19960501, end: 19960507
  37. CLONIDINE [Suspect]
     Indication: ESSENTIAL HYPERTENSION
     Dosage: UNK
     Route: 058
     Dates: start: 19960501, end: 19960501
  38. PROPOFOL [Suspect]
     Dosage: UNK
     Route: 042
     Dates: start: 19960505, end: 19960506
  39. PROSTIGMIN BROMIDE [Suspect]
     Dosage: UNK
     Route: 042
     Dates: start: 19960505, end: 19960505
  40. BEPANTHEN [Suspect]
     Indication: PROPHYLAXIS
     Dosage: UNK
     Route: 042
     Dates: start: 19960505, end: 19960505
  41. FAMOTIDINE [Suspect]
     Indication: PROPHYLAXIS
     Dosage: UNK
     Route: 042
     Dates: start: 19960507, end: 19960507
  42. DOBUTREX [Suspect]
     Dosage: UNK
     Route: 042
     Dates: start: 19960502, end: 19960507

REACTIONS (1)
  - TOXIC EPIDERMAL NECROLYSIS [None]
